FAERS Safety Report 8057171-8 (Version None)
Quarter: 2012Q1

REPORT INFORMATION
  Report Type: 
  Country: None (occurrence: None)
  Receive Date: 20120119
  Receipt Date: 20120115
  Transmission Date: 20120608
  Serious: Yes (Hospitalization)
  Sender: FDA-Public Use
  Company Number: US-B.I. PHARMACEUTICALS,INC./RIDGEFIELD-2012-BP-00856BP

PATIENT
  Age: 75 Year
  Sex: Male

DRUGS (6)
  1. PRADAXA [Suspect]
     Route: 048
     Dates: end: 20120113
  2. ASPIRIN [Concomitant]
  3. LOSARTAN POTASSIUM [Concomitant]
  4. DILANTIN [Concomitant]
  5. TEGRETOL [Concomitant]
  6. METOPROLOL TARTRATE [Concomitant]

REACTIONS (1)
  - CONVULSION [None]
